FAERS Safety Report 7433888-0 (Version None)
Quarter: 2011Q2

REPORT INFORMATION
  Report Type: 
  Country: None (occurrence: None)
  Receive Date: 20110420
  Receipt Date: 20110420
  Transmission Date: 20111010
  Serious: Yes (Other)
  Sender: FDA-Public Use
  Company Number: None

PATIENT
  Age: 71 Year
  Sex: Male
  Weight: 90.7194 kg

DRUGS (2)
  1. PRADAXA [Suspect]
     Indication: CARDIAC FIBRILLATION
     Dosage: 150MG 2X/DAY PO
     Route: 048
     Dates: start: 20110409, end: 20110417
  2. PRADAXA [Suspect]
     Indication: THROMBOSIS PROPHYLAXIS
     Dosage: 150MG 2X/DAY PO
     Route: 048
     Dates: start: 20110409, end: 20110417

REACTIONS (1)
  - GASTRITIS [None]
